FAERS Safety Report 11046776 (Version 1)
Quarter: 2015Q2

REPORT INFORMATION
  Report Type: Spontaneous
  Country: US (occurrence: None)
  Receive Date: 20150416
  Receipt Date: 20150416
  Transmission Date: 20150821
  Serious: Yes (Other)
  Sender: FDA-Public Use
  Company Number: ADR-2015-00715

PATIENT
  Age: 32 Year
  Sex: Male

DRUGS (1)
  1. LIORESAL [Suspect]
     Active Substance: BACLOFEN

REACTIONS (9)
  - Device connection issue [None]
  - Tachycardia [None]
  - Muscle spasticity [None]
  - Drug withdrawal syndrome [None]
  - Tachypnoea [None]
  - Hyperreflexia [None]
  - Condition aggravated [None]
  - Restlessness [None]
  - Anxiety [None]

NARRATIVE: CASE EVENT DATE: 20140923
